FAERS Safety Report 5079697-1 (Version None)
Quarter: 2006Q3

REPORT INFORMATION
  Report Type: 
  Country: None (occurrence: None)
  Receive Date: 20060814
  Receipt Date: 20060803
  Transmission Date: 20061208
  Serious: Yes (Hospitalization)
  Sender: FDA-Public Use
  Company Number: DE-MERCK-0608DEU00058

PATIENT
  Age: 15 Year
  Sex: Female

DRUGS (1)
  1. SINGULAIR [Suspect]
     Route: 048
     Dates: start: 20030131, end: 20030131

REACTIONS (3)
  - ABDOMINAL PAIN [None]
  - OVERDOSE [None]
  - SUICIDAL IDEATION [None]
